FAERS Safety Report 9414604 (Version 2)
Quarter: 2013Q3

REPORT INFORMATION
  Report Type: Spontaneous
  Country: JP (occurrence: JP)
  Receive Date: 20130723
  Receipt Date: 20130925
  Transmission Date: 20140515
  Serious: Yes (Death, Hospitalization, Other)
  Sender: FDA-Public Use
  Company Number: JP-BAYER-2012-097715

PATIENT
  Age: 62 Year
  Sex: Male
  Weight: 62 kg

DRUGS (14)
  1. NEXAVAR [Suspect]
     Indication: RENAL CELL CARCINOMA
     Dosage: DAILY DOSE 800 MG
     Route: 048
     Dates: start: 20120815, end: 20120823
  2. NEXAVAR [Suspect]
     Indication: RENAL CELL CARCINOMA
     Dosage: DAILY DOSE 200 MG
     Route: 048
     Dates: start: 20121023, end: 20121109
  3. NEXAVAR [Suspect]
     Indication: RENAL CELL CARCINOMA
     Dosage: DAILY DOSE 400 MG
     Route: 048
     Dates: start: 20121221, end: 20130607
  4. WARFARIN [Concomitant]
     Indication: THROMBOSIS PROPHYLAXIS
     Dosage: DAILY DOSE 3 MG
     Route: 048
     Dates: start: 20120322
  5. URSO [Concomitant]
     Indication: HEPATIC FUNCTION ABNORMAL
     Dosage: DAILY DOSE 600 MG
     Route: 048
     Dates: start: 20120317
  6. AMLODIN [Concomitant]
     Indication: HYPERTENSION
     Dosage: DAILY DOSE 2.5 MG
     Route: 048
  7. FEBUXOSTAT [Concomitant]
     Indication: HYPERURICAEMIA
     Dosage: DAILY DOSE 40 MG
     Route: 048
     Dates: start: 20120328, end: 20120928
  8. ACECOL [Concomitant]
     Indication: HYPERTENSION
     Dosage: DAILY DOSE 1 MG
     Route: 048
     Dates: start: 20120601, end: 20120928
  9. LYRICA [Concomitant]
     Dosage: DAILY DOSE 75 MG
     Route: 048
     Dates: start: 20120829
  10. NEUROTROPIN [RABBIT VACCINIA EXTRACT] [Concomitant]
     Indication: PAIN
     Dosage: DAILY DOSE 4 DF
     Route: 048
     Dates: start: 20120829
  11. PREDNISOLONE [Concomitant]
     Indication: INFLAMMATION
     Dosage: DAILY DOSE 5 MG
     Route: 048
     Dates: start: 20120827
  12. FERROMIA [Concomitant]
     Indication: ANAEMIA
     Dosage: DAILY DOSE 50 MG
     Route: 048
     Dates: start: 20130411
  13. THYRADIN [Concomitant]
     Indication: HYPOTHYROIDISM
     Dosage: DAILY DOSE 50 ?G
     Route: 048
     Dates: start: 20121023
  14. ALFAROL [Concomitant]
     Indication: BONE PAIN
     Dosage: DAILY DOSE 1 ?G
     Route: 048
     Dates: start: 20130324

REACTIONS (5)
  - Infection [Fatal]
  - Rectal haemorrhage [Recovered/Resolved]
  - Erythema multiforme [Recovering/Resolving]
  - Anaemia [Recovered/Resolved]
  - Faeces discoloured [Recovered/Resolved]
